FAERS Safety Report 9819521 (Version 2)
Quarter: 2014Q1

REPORT INFORMATION
  Report Type: Spontaneous
  Country: JP (occurrence: None)
  Receive Date: 20140113
  Receipt Date: 20140122
  Transmission Date: 20141002
  Serious: Yes (Hospitalization)
  Sender: FDA-Public Use
  Company Number: JP-2013-4379

PATIENT
  Age: 72 Year
  Sex: Male
  Weight: 56 kg

DRUGS (11)
  1. NAVELBINE [Suspect]
     Indication: LUNG NEOPLASM MALIGNANT
     Dosage: TOTAL
     Route: 041
     Dates: start: 20070220, end: 20070220
  2. CISPLATIN [Suspect]
     Indication: LUNG NEOPLASM MALIGNANT
     Dosage: TOTAL
     Route: 041
     Dates: start: 20070220, end: 20070220
  3. SODIUM CHLORIDE (SODIUM CHLORIDE) [Concomitant]
  4. ZOFRAN (ONDANSETRON) [Concomitant]
  5. DECADRON (DEXAMETHASONE SODIUM PHOSPHATE) [Concomitant]
  6. CINAL (ASCORBIC ACID, CALCIUM PANTOTHENATE) [Concomitant]
  7. JUVELA (TOCOPHERYL ACETATE) [Concomitant]
  8. ALINAMIN F (FURSULTIAMINE HYDROCHLORIDE) [Concomitant]
  9. VANCOMIN (MECOBALAMIN) [Concomitant]
  10. GASTER (FAMOTIDINE) [Concomitant]
  11. SPIRIVA (TIOTROPIUM BROMIDE) (TIOTROPIUM BROMIDE) [Concomitant]

REACTIONS (1)
  - Pneumothorax [None]
